FAERS Safety Report 13495887 (Version 1)
Quarter: 2017Q2

REPORT INFORMATION
  Report Type: Spontaneous
  Country: FR (occurrence: FR)
  Receive Date: 20170428
  Receipt Date: 20170428
  Transmission Date: 20170830
  Serious: Yes (Other)
  Sender: FDA-Public Use
  Company Number: FR-GLAXOSMITHKLINE-FR2017GSK060374

PATIENT
  Sex: Female

DRUGS (1)
  1. LAMICTAL [Suspect]
     Active Substance: LAMOTRIGINE
     Indication: PRODUCT USED FOR UNKNOWN INDICATION

REACTIONS (24)
  - Headache [Recovered/Resolved]
  - Coordination abnormal [Recovered/Resolved]
  - Tremor [Recovered/Resolved]
  - Insomnia [Not Recovered/Not Resolved]
  - Condition aggravated [Recovered/Resolved]
  - Dry mouth [Recovered/Resolved]
  - Back pain [Recovered/Resolved]
  - Vision blurred [Not Recovered/Not Resolved]
  - Haematoma [Recovered/Resolved]
  - Suicidal ideation [Not Recovered/Not Resolved]
  - Stomatitis [Recovered/Resolved]
  - Pyrexia [Recovered/Resolved]
  - Dizziness [Recovered/Resolved]
  - Fatigue [Recovered/Resolved]
  - Arthralgia [Recovered/Resolved]
  - Dysstasia [Unknown]
  - Eye irritation [Recovered/Resolved]
  - Nausea [Recovered/Resolved]
  - Clumsiness [Recovered/Resolved]
  - Confusional state [Recovered/Resolved]
  - Oropharyngeal pain [Recovered/Resolved]
  - Hallucination [Recovered/Resolved]
  - Negative thoughts [Recovered/Resolved]
  - Feeling abnormal [Unknown]
